FAERS Safety Report 4800119-7 (Version None)
Quarter: 2005Q4

REPORT INFORMATION
  Report Type: 
  Country: None (occurrence: None)
  Receive Date: 20051017
  Receipt Date: 20041203
  Transmission Date: 20060501
  Serious: Yes (Other)
  Sender: FDA-Public Use
  Company Number: GB-GLAXOSMITHKLINE-B0359531A

PATIENT
  Age: 19 Year
  Sex: Female

DRUGS (3)
  1. SEROXAT [Suspect]
     Indication: DEPRESSED MOOD
     Route: 065
     Dates: start: 19980101
  2. ZOPICLONE [Concomitant]
     Dates: start: 19990323
  3. WINE [Concomitant]
     Dates: start: 19990323

REACTIONS (3)
  - COMPLETED SUICIDE [None]
  - ILL-DEFINED DISORDER [None]
  - OVERDOSE [None]
